FAERS Safety Report 7509619-2 (Version None)
Quarter: 2011Q2

REPORT INFORMATION
  Report Type: 
  Country: None (occurrence: None)
  Receive Date: 20110527
  Receipt Date: 20110513
  Transmission Date: 20111010
  Serious: Yes (Hospitalization)
  Sender: FDA-Public Use
  Company Number: DK-JNJFOC-20110506663

PATIENT
  Sex: Male

DRUGS (4)
  1. REMICADE [Suspect]
     Route: 042
     Dates: start: 20100111
  2. REMICADE [Suspect]
     Indication: JUVENILE ARTHRITIS
     Route: 042
     Dates: start: 20050524
  3. METHOTREXATE [Concomitant]
     Indication: JUVENILE ARTHRITIS
     Dates: start: 20050829
  4. HYDROXYCHLOROQUINE SULFATE [Concomitant]
     Indication: JUVENILE ARTHRITIS
     Dates: start: 20050524

REACTIONS (1)
  - THROMBOSIS [None]
